FAERS Safety Report 5423495-3 (Version None)
Quarter: 2007Q3

REPORT INFORMATION
  Report Type: 
  Country: None (occurrence: None)
  Receive Date: 20070823
  Receipt Date: 20070822
  Transmission Date: 20080115
  Serious: Yes (Hospitalization)
  Sender: FDA-Public Use
  Company Number: IT-BRISTOL-MYERS SQUIBB COMPANY-13874557

PATIENT
  Age: 58 Year
  Sex: Female
  Weight: 96 kg

DRUGS (5)
  1. PACLITAXEL [Suspect]
     Indication: BREAST CANCER
     Dosage: 200MG ONCE IN EVERY 3 WEEKS DOSE REDUCED TO 80MG ON 16-AUG-2007.
     Route: 042
     Dates: start: 20070726
  2. CAPECITABINE [Suspect]
     Indication: BREAST CANCER
     Dosage: 3500MG ONCE IN EVERY 3WEEKS DOSE REDUCED TO 1050MG ON 16-AUG-2007
     Route: 048
     Dates: start: 20070726
  3. EXEMESTANE [Suspect]
     Indication: BREAST CANCER
     Route: 048
     Dates: start: 20070426
  4. SOTALOL HYDROCHLORIDE [Concomitant]
     Route: 048
  5. GABAPENTIN [Concomitant]
     Route: 048
     Dates: start: 20070726

REACTIONS (1)
  - NEUTROPENIA [None]
